FAERS Safety Report 4623324-1 (Version None)
Quarter: 2005Q1

REPORT INFORMATION
  Report Type: 
  Country: None (occurrence: None)
  Receive Date: 20050329
  Receipt Date: 20050307
  Transmission Date: 20050727
  Serious: Yes (Other)
  Sender: FDA-Public Use
  Company Number: USA050392783

PATIENT
  Age: 48 Year
  Sex: Female

DRUGS (1)
  1. CYMBALTA [Suspect]
     Dosage: 60 MG DAY
     Dates: start: 20050131

REACTIONS (1)
  - HEPATIC ENZYME INCREASED [None]
